FAERS Safety Report 5114713-X (Version None)
Quarter: 2006Q3

REPORT INFORMATION
  Report Type: 
  Country: None (occurrence: None)
  Receive Date: 20060921
  Receipt Date: 20060914
  Transmission Date: 20061208
  Serious: Yes (Death)
  Sender: FDA-Public Use
  Company Number: 028-C5013-06070580

PATIENT
  Age: 71 Year
  Sex: Male
  Weight: 68 kg

DRUGS (9)
  1. CC-5013 (LENALIDOMIDE) (CAPSULES) [Suspect]
     Indication: MULTIPLE MYELOMA
     Dosage: 25 MG, QD X 21 DAYS, ORAL
     Route: 048
     Dates: start: 20040219, end: 20060706
  2. DEXAMETHASONE TAB [Suspect]
     Indication: MULTIPLE MYELOMA
     Dates: start: 20060219, end: 20060706
  3. GLYBURIDE [Concomitant]
  4. RAMIPRIL [Concomitant]
  5. ZANTAC [Concomitant]
  6. WARFARIN SODIUM [Concomitant]
  7. LIPITOR [Concomitant]
  8. PAMIDRONATE DISODIUM [Concomitant]
  9. EPREX [Concomitant]

REACTIONS (5)
  - GENERAL PHYSICAL HEALTH DETERIORATION [None]
  - NASOPHARYNGITIS [None]
  - PNEUMONIA [None]
  - REFUSAL OF TREATMENT BY PATIENT [None]
  - SUDDEN DEATH [None]
